FAERS Safety Report 7497494-4 (Version None)
Quarter: 2011Q2

REPORT INFORMATION
  Report Type: 
  Country: None (occurrence: None)
  Receive Date: 20110523
  Receipt Date: 20110510
  Transmission Date: 20111010
  Serious: Yes (Other)
  Sender: FDA-Public Use
  Company Number: US-NAPPMUNDI-DEU-2011-0007314

PATIENT
  Age: 59 Year
  Sex: Female
  Weight: 100 kg

DRUGS (3)
  1. PROMETHAZINE [Suspect]
     Indication: PAIN
     Dosage: 25 MG, SINGLE
     Route: 042
  2. HYDROMORPHONE HCL [Suspect]
     Indication: PAIN
     Dosage: 1 MG, SINGLE
     Route: 030
  3. MEPERIDINE HCL [Suspect]
     Indication: PAIN
     Dosage: 50 MG, SINGLE
     Route: 042

REACTIONS (2)
  - SOMNOLENCE [None]
  - RESPIRATORY FAILURE [None]
